FAERS Safety Report 12898349 (Version 4)
Quarter: 2016Q4

REPORT INFORMATION
  Report Type: Spontaneous
  Country: FR (occurrence: FR)
  Receive Date: 20161031
  Receipt Date: 20161129
  Transmission Date: 20170207
  Serious: Yes (Death, Other)
  Sender: FDA-Public Use
  Company Number: FR-BIOMARINAP-FR-2016-111646

PATIENT
  Age: 12 Year
  Sex: Male

DRUGS (1)
  1. ALDURAZYME [Suspect]
     Active Substance: LARONIDASE
     Indication: MUCOPOLYSACCHARIDOSIS I
     Dosage: UNK
     Route: 041
     Dates: start: 20041016, end: 20160301

REACTIONS (7)
  - Respiratory disorder [Unknown]
  - Device related infection [Unknown]
  - Spinal cord compression [Fatal]
  - Brain compression [Fatal]
  - Paralysis [Fatal]
  - Mechanical ventilation [Unknown]
  - Sinusitis [Unknown]

NARRATIVE: CASE EVENT DATE: 2016
